FAERS Safety Report 4883792-7 (Version None)
Quarter: 2006Q1

REPORT INFORMATION
  Report Type: 
  Country: None (occurrence: None)
  Receive Date: 20060113
  Receipt Date: 20051222
  Transmission Date: 20060701
  Serious: Yes (Other)
  Sender: FDA-Public Use
  Company Number: US200512004213

PATIENT
  Sex: Female

DRUGS (2)
  1. EVISTA [Suspect]
     Indication: OSTEOPOROSIS
     Dosage: 60 MG, DAILY (1/D),
     Dates: start: 19990601
  2. ALENDRONATE SODIUM [Concomitant]

REACTIONS (3)
  - BREAST PAIN [None]
  - COLON CANCER [None]
  - MUSCLE SPASMS [None]
